FAERS Safety Report 21128134 (Version 1)
Quarter: 2022Q3

REPORT INFORMATION
  Report Type: Spontaneous
  Country: US (occurrence: US)
  Receive Date: 20220725
  Receipt Date: 20220725
  Transmission Date: 20221027
  Serious: No
  Sender: FDA-Public Use
  Company Number: US-ABBVIE-22K-163-4460940-00

PATIENT
  Sex: Female

DRUGS (2)
  1. SYNTHROID [Suspect]
     Active Substance: LEVOTHYROXINE SODIUM
     Indication: Hypothyroidism
     Dosage: OVER 30 YEARS AGO?CHANGED TO ARMOUR THYROID
     Route: 048
  2. ARMOUR THYROID [Suspect]
     Active Substance: THYROID, PORCINE
     Indication: Hypothyroidism
     Dosage: AFTER SYNTHROID
     Route: 065

REACTIONS (8)
  - Bone disorder [Unknown]
  - Mobility decreased [Unknown]
  - Hypoaesthesia [Unknown]
  - Malaise [Unknown]
  - Pain [Unknown]
  - Lethargy [Unknown]
  - Drug intolerance [Unknown]
  - Feeling jittery [Unknown]
